FAERS Safety Report 11528983 (Version 2)
Quarter: 2015Q4

REPORT INFORMATION
  Report Type: Spontaneous
  Country: BE (occurrence: BE)
  Receive Date: 20150921
  Receipt Date: 20151207
  Transmission Date: 20160304
  Serious: Yes (Other)
  Sender: FDA-Public Use
  Company Number: BE-AMGEN-BELSP2015096578

PATIENT
  Age: 43 Year
  Sex: Female

DRUGS (1)
  1. ENBREL [Suspect]
     Active Substance: ETANERCEPT
     Indication: PSORIASIS
     Dosage: 50 MG, WEEKLY
     Route: 058
     Dates: start: 20150311

REACTIONS (4)
  - Hypertension [Recovered/Resolved]
  - Headache [Unknown]
  - Hyperhidrosis [Recovering/Resolving]
  - Irritability [Unknown]

NARRATIVE: CASE EVENT DATE: 20150903
